FAERS Safety Report 5059440-2 (Version None)
Quarter: 2006Q3

REPORT INFORMATION
  Report Type: 
  Country: None (occurrence: None)
  Receive Date: 20060724
  Receipt Date: 20060404
  Transmission Date: 20061208
  Serious: No
  Sender: FDA-Public Use
  Company Number: 2006GB00565

PATIENT
  Age: 22505 Day
  Sex: Male

DRUGS (2)
  1. ZOLADEX [Suspect]
     Indication: PROSTATE CANCER
     Route: 058
     Dates: start: 20060104
  2. CASODEX [Suspect]
     Indication: PROSTATE CANCER
     Route: 048
     Dates: start: 20051221

REACTIONS (6)
  - EXOSTOSIS [None]
  - GAIT DISTURBANCE [None]
  - INTERVERTEBRAL DISC SPACE NARROWING [None]
  - NEUROPATHY PERIPHERAL [None]
  - PAIN IN EXTREMITY [None]
  - SPINAL OSTEOARTHRITIS [None]
